FAERS Safety Report 5251933-8 (Version None)
Quarter: 2007Q1

REPORT INFORMATION
  Report Type: 
  Country: None (occurrence: None)
  Receive Date: 20070223
  Receipt Date: 20070214
  Transmission Date: 20070707
  Serious: Yes (Hospitalization)
  Sender: FDA-Public Use
  Company Number: 236669

PATIENT
  Age: 59 Year
  Sex: Male

DRUGS (2)
  1. AVASTIN [Suspect]
     Indication: NON-SMALL CELL LUNG CANCER
     Dosage: 15 MG/KG, Q3W, INTRAVENOUS
     Route: 042
     Dates: end: 20070129
  2. ERLOTINIB (ERLOTINIB) TABLET, 100MG [Suspect]
     Indication: NON-SMALL CELL LUNG CANCER
     Dosage: 150 MG, QD, ORAL
     Route: 048
     Dates: start: 20070212

REACTIONS (12)
  - DEHYDRATION [None]
  - DIARRHOEA [None]
  - DIZZINESS [None]
  - DYSPNOEA EXERTIONAL [None]
  - GAIT DISTURBANCE [None]
  - MOVEMENT DISORDER [None]
  - NAUSEA [None]
  - ODYNOPHAGIA [None]
  - OESOPHAGEAL PAIN [None]
  - ORAL INTAKE REDUCED [None]
  - SPEECH DISORDER [None]
  - WEIGHT DECREASED [None]
